FAERS Safety Report 15632482 (Version 1)
Quarter: 2018Q4

REPORT INFORMATION
  Report Type: Spontaneous
  Country: US (occurrence: US)
  Receive Date: 20181116
  Receipt Date: 20181116
  Transmission Date: 20190205
  Serious: No
  Sender: FDA-Public Use
  Company Number: None

PATIENT

DRUGS (1)
  1. DIAZEPAM INJECTION, CIV CARPUJECT LUER LOCK GLASS SYRINGE [Suspect]
     Active Substance: DIAZEPAM

REACTIONS (1)
  - Aortic aneurysm [None]
